FAERS Safety Report 10540077 (Version 1)
Quarter: 2014Q4

REPORT INFORMATION
  Report Type: Spontaneous
  Country: US (occurrence: None)
  Receive Date: 20141022
  Receipt Date: 20141022
  Transmission Date: 20150529
  Serious: Yes (Other)
  Sender: FDA-Public Use
  Company Number: US-001347

PATIENT
  Age: 35 Year
  Sex: Female

DRUGS (3)
  1. SOLUTIONS FOR PARENTERAL NUTRITION [Concomitant]
     Active Substance: AMINO ACIDS\DEXTROSE\ELECTROLYTES NOS
  2. CODEINE [Concomitant]
     Active Substance: CODEINE
  3. GATTEX [Suspect]
     Active Substance: TEDUGLUTIDE\WATER
     Indication: SHORT-BOWEL SYNDROME
     Route: 058
     Dates: start: 20140913

REACTIONS (8)
  - Vomiting [None]
  - Constipation [None]
  - Intestinal obstruction [None]
  - Abdominal distension [None]
  - Abdominal pain [None]
  - Diarrhoea [None]
  - Retching [None]
  - Drug dose omission [None]

NARRATIVE: CASE EVENT DATE: 201409
